FAERS Safety Report 7064098-7 (Version None)
Quarter: 2010Q4

REPORT INFORMATION
  Report Type: 
  Country: None (occurrence: None)
  Receive Date: 20101027
  Receipt Date: 20101018
  Transmission Date: 20110411
  Serious: Yes (Hospitalization, Other)
  Sender: FDA-Public Use
  Company Number: US-ELI_LILLY_AND_COMPANY-US200910004058

PATIENT
  Sex: Male
  Weight: 111.11 kg

DRUGS (18)
  1. BYETTA [Suspect]
     Dosage: 5 UG, 2/D
     Route: 058
     Dates: start: 20060201, end: 20080816
  2. GLIPIZIDE [Concomitant]
     Indication: DIABETES MELLITUS
     Dates: start: 19990101
  3. LIPITOR [Concomitant]
     Indication: BLOOD CHOLESTEROL INCREASED
     Dates: start: 20030101, end: 20070101
  4. TRICOR [Concomitant]
  5. AVANDIA [Concomitant]
     Indication: DIABETES MELLITUS
     Dates: start: 20020101, end: 20080101
  6. AVALIDE [Concomitant]
     Indication: HYPERTENSION
  7. AVAPRO [Concomitant]
  8. LEVITRA [Concomitant]
  9. CHLORHEXIDINE GLUCONATE [Concomitant]
  10. METHADONE [Concomitant]
  11. REGLAN [Concomitant]
  12. ACTOS [Concomitant]
  13. SIMVASTATIN [Concomitant]
  14. METFORMIN [Concomitant]
  15. PROTONIX [Concomitant]
     Indication: GASTROOESOPHAGEAL REFLUX DISEASE
     Dates: start: 20050101, end: 20070101
  16. PROTONIX [Concomitant]
     Dosage: 40 MG, 2/D
     Route: 048
  17. IBUPROFEN [Concomitant]
     Indication: ANALGESIC THERAPY
     Dosage: UNK, AS NEEDED
  18. TYLENOL                                 /SCH/ [Concomitant]
     Indication: ANALGESIC THERAPY
     Dosage: UNK, AS NEEDED

REACTIONS (4)
  - OFF LABEL USE [None]
  - PANCREATITIS ACUTE [None]
  - PANCREATITIS CHRONIC [None]
  - RENAL FAILURE CHRONIC [None]
